FAERS Safety Report 11517740 (Version 1)
Quarter: 2015Q3

REPORT INFORMATION
  Report Type: Spontaneous
  Country: FR (occurrence: FR)
  Receive Date: 20150917
  Receipt Date: 20150917
  Transmission Date: 20151125
  Serious: Yes (Hospitalization)
  Sender: FDA-Public Use
  Company Number: FR-ASTRAZENECA-2015SE88547

PATIENT
  Age: 4256 Week
  Sex: Female

DRUGS (19)
  1. CETIRIZINE [Concomitant]
     Active Substance: CETIRIZINE HYDROCHLORIDE
  2. TRINITRINE [Concomitant]
     Active Substance: NITROGLYCERIN
  3. IPRATROPIUM [Concomitant]
     Active Substance: IPRATROPIUM
  4. SERETIDE [Concomitant]
     Active Substance: FLUTICASONE FUROATE\SALMETEROL XINAFOATE
  5. CONTRAMAL [Concomitant]
     Active Substance: TRAMADOL HYDROCHLORIDE
  6. AUGMENTIN [Suspect]
     Active Substance: AMOXICILLIN\CLAVULANATE POTASSIUM
     Indication: ANTIBIOTIC THERAPY
     Route: 048
     Dates: start: 20150227, end: 20150307
  7. PREVISCAN [Concomitant]
     Active Substance: FLUINDIONE
  8. BRILIQUE [Suspect]
     Active Substance: TICAGRELOR
     Route: 048
     Dates: start: 20150306, end: 20150307
  9. IMOVANE [Concomitant]
     Active Substance: ZOPICLONE
  10. DIFFU K [Concomitant]
     Active Substance: POTASSIUM CHLORIDE
  11. LOSARTAN. [Concomitant]
     Active Substance: LOSARTAN
  12. LASILIX [Concomitant]
     Active Substance: FUROSEMIDE
  13. TAHOR [Concomitant]
     Active Substance: ATORVASTATIN CALCIUM
  14. TERBUTALINE [Concomitant]
     Active Substance: TERBUTALINE
  15. CYMBALTA [Concomitant]
     Active Substance: DULOXETINE HYDROCHLORIDE
  16. TARDYFERON [Concomitant]
     Active Substance: FERROUS SULFATE\FOLIC ACID
  17. CALCIPARINE [Suspect]
     Active Substance: HEPARIN CALCIUM
     Route: 058
     Dates: start: 20150304, end: 20150307
  18. EUPANTOL [Concomitant]
     Active Substance: PANTOPRAZOLE SODIUM
  19. ISOPTINE [Concomitant]
     Active Substance: VERAPAMIL HYDROCHLORIDE

REACTIONS (2)
  - Rash maculo-papular [Recovered/Resolved]
  - Toxic skin eruption [Unknown]

NARRATIVE: CASE EVENT DATE: 20150307
